FAERS Safety Report 11316412 (Version 1)
Quarter: 2015Q3

REPORT INFORMATION
  Report Type: Report from Study
  Country: AU (occurrence: AU)
  Receive Date: 20150728
  Receipt Date: 20150728
  Transmission Date: 20151125
  Serious: Yes (Life-Threatening, Hospitalization, Other)
  Sender: FDA-Public Use
  Company Number: AU-JNJFOC-20150719119

PATIENT
  Age: 0 Day
  Sex: Female
  Weight: 3.8 kg

DRUGS (7)
  1. NEXIUM [Suspect]
     Active Substance: ESOMEPRAZOLE MAGNESIUM
     Indication: ANTACID THERAPY
     Dosage: DRUG STARTED DURING PRE PREGNANCY AND WAS ONGOING
     Route: 048
  2. SEROQUEL [Suspect]
     Active Substance: QUETIAPINE FUMARATE
     Indication: PSYCHOTIC DISORDER
     Dosage: DRUG STARTED AT 14/40 WEEKS TILL 16/40WEEKS
     Route: 048
  3. RISPERDAL [Suspect]
     Active Substance: RISPERIDONE
     Indication: PSYCHOTIC DISORDER
     Dosage: DRUG STARTED DURING PRE PREGNANCY TILL 26-27/40 WEEKS
     Route: 048
  4. CLEXANE [Suspect]
     Active Substance: ENOXAPARIN SODIUM
     Indication: ANTICOAGULANT THERAPY
     Dosage: DRUG STARTED DURING 1ST TRIMESTER AND WAS ONGOING
     Route: 058
  5. FLUOXETINE [Suspect]
     Active Substance: FLUOXETINE\FLUOXETINE HYDROCHLORIDE
     Indication: ANTIDEPRESSANT THERAPY
     Route: 048
  6. LABETALOL [Suspect]
     Active Substance: LABETALOL\LABETALOL HYDROCHLORIDE
     Indication: HYPERTENSION
     Dosage: DRUG STARTED DURING PRE PREGNANCY AND WAS ONGOING
     Route: 048
  7. FERRO F [Concomitant]
     Indication: MINERAL SUPPLEMENTATION
     Dosage: DRUG STARTED DURING 1ST TRIMESTER AND WAS ONGOING
     Route: 048

REACTIONS (3)
  - Foetal exposure during pregnancy [Recovered/Resolved]
  - Neonatal respiratory distress syndrome [Recovered/Resolved]
  - Foetal distress syndrome [Recovered/Resolved]

NARRATIVE: CASE EVENT DATE: 20140707
